FAERS Safety Report 7505842-1 (Version None)
Quarter: 2011Q2

REPORT INFORMATION
  Report Type: 
  Country: None (occurrence: None)
  Receive Date: 20110526
  Receipt Date: 20110518
  Transmission Date: 20111010
  Serious: Yes (Hospitalization, Other)
  Sender: FDA-Public Use
  Company Number: US-ELI_LILLY_AND_COMPANY-US200906005658

PATIENT
  Sex: Female
  Weight: 92.971 kg

DRUGS (24)
  1. DIOVAN [Concomitant]
     Indication: HYPERTENSION
  2. ZETIA [Concomitant]
  3. CLINDAMYCIN [Concomitant]
     Dosage: 1 D/F, 3/D
     Route: 048
  4. LIPITOR [Concomitant]
     Dosage: 20 MG, UNK
  5. ASPIRIN [Concomitant]
     Dosage: 81 MG, UNK
  6. RANITIDINE [Concomitant]
     Dosage: 300 MG, 2/D
     Route: 048
  7. PROAIR HFA [Concomitant]
     Dosage: 8.5 G, 4/D
     Route: 055
  8. SYNTHROID [Concomitant]
     Indication: HYPOTHYROIDISM
  9. METFORMIN HCL [Concomitant]
  10. GOODYS POWDERS [Concomitant]
  11. FEXOFENADINE [Concomitant]
     Dosage: 180 MG, EACH MORNING
     Route: 048
  12. TRAMADOL HCL [Concomitant]
     Dosage: 50 MG, 2/D
     Route: 048
  13. OMACOR [Concomitant]
     Dosage: 1 G, UNK
  14. LISINOPRIL HYDROCHLORTHIAZID [Concomitant]
  15. PRAVASTATIN [Concomitant]
  16. BYETTA [Suspect]
     Dosage: UNK, UNK
     Dates: start: 20070914, end: 20080114
  17. COENZYME Q10 [Concomitant]
     Dosage: 100 MG, UNK
  18. ACIPHEX [Concomitant]
     Dosage: 1 D/F, DAILY (1/D)
  19. ERGOTAMINE TARTRATE AND CAFFEINE [Concomitant]
     Dosage: UNK, AS NEEDED
  20. HYDROCODONE BITARTRATE [Concomitant]
     Dosage: 7.5 MG, AS NEEDED
  21. BUTALBITAL ACETAMINOPHEN AND CAFFEINE [Concomitant]
     Dosage: UNK, AS NEEDED
  22. BYETTA [Suspect]
     Dosage: 10 UG, UNK
     Dates: start: 20080422, end: 20081010
  23. MULTI-VITAMIN [Concomitant]
  24. DESOXIMETASONE [Concomitant]
     Dosage: UNK, AS NEEDED

REACTIONS (4)
  - DUODENITIS [None]
  - GASTRIC ULCER [None]
  - RENAL INJURY [None]
  - PANCREATITIS [None]
